FAERS Safety Report 7916453 (Version 4)
Quarter: 2013Q2

REPORT INFORMATION
  Report Type: Spontaneous
  Country: IT (occurrence: IT)
  Receive Date: 20110427
  Receipt Date: 20130515
  Transmission Date: 20140414
  Serious: Yes (Hospitalization)
  Sender: FDA-Public Use
  Company Number: IT-PFIZER INC-2011088435

PATIENT
  Age: 88 Year
  Sex: Male

DRUGS (8)
  1. CORDARONE [Suspect]
     Indication: EXTRASYSTOLES
     Dosage: 200 MG DAILY
     Route: 048
     Dates: start: 20070407, end: 20110407
  2. CARVEDILOL [Interacting]
     Dosage: 6.25 MG, DAILY
     Route: 048
     Dates: start: 20090407, end: 20110407
  3. KARVEA [Interacting]
     Dosage: 150 MG, DAILY
     Route: 048
     Dates: start: 20090407, end: 20110407
  4. MODURETIC [Interacting]
     Dosage: [AMILORIDE HYDROCHLORIDE  5 MG]/[HYDROCHLOROTHIAZIDE 50 MG], DAILY
     Route: 048
     Dates: start: 20090407, end: 20110407
  5. ZYLORIC [Concomitant]
     Dosage: 30 MG, UNK
     Route: 048
  6. CARDIOASPIRIN [Concomitant]
     Dosage: 100 MG, UNK
     Route: 048
  7. CARDURA [Concomitant]
     Dosage: 2 MG, UNK
     Route: 048
  8. CASODEX [Concomitant]
     Indication: PROSTATE CANCER
     Dosage: 50 MG, UNK
     Route: 048
     Dates: start: 20090407

REACTIONS (6)
  - Drug interaction [Recovered/Resolved]
  - Bradycardia [Recovered/Resolved]
  - Hyperkalaemia [Recovered/Resolved]
  - Electrocardiogram QT prolonged [Unknown]
  - Drug interaction [Recovered/Resolved]
  - Hypertension [Recovered/Resolved]
